FAERS Safety Report 21511927 (Version 1)
Quarter: 2022Q4

REPORT INFORMATION
  Report Type: Spontaneous
  Country: CN (occurrence: None)
  Receive Date: 20221027
  Receipt Date: 20221027
  Transmission Date: 20230112
  Serious: Yes (Other)
  Sender: FDA-Public Use
  Company Number: CN-ROCHE-3205862

PATIENT
  Age: 45 Year
  Sex: Female

DRUGS (15)
  1. HERCEPTIN [Suspect]
     Active Substance: TRASTUZUMAB
     Indication: Invasive ductal breast carcinoma
     Dosage: 300 MG DAY 1 THREE WEEKS A CYCLE, LAST TREATMENT TIME WAS 14/OCT/2021
     Route: 041
     Dates: start: 20201023, end: 20210206
  2. PERJETA [Suspect]
     Active Substance: PERTUZUMAB
     Indication: Invasive ductal breast carcinoma
     Dosage: 420MG DAY 1 THREE WEEKS A CYCLE, THE LAST TREATMENT TIME WAS 14/OCT/2021
     Route: 041
     Dates: start: 20201023, end: 20210206
  3. XELODA [Suspect]
     Active Substance: CAPECITABINE
     Indication: Invasive ductal breast carcinoma
     Dosage: 1.5 G TWICE A DAY 14 DAYS THREE WEEKS A CYCLE
     Route: 048
     Dates: start: 20211111
  4. XELODA [Suspect]
     Active Substance: CAPECITABINE
     Dosage: 1.5G TWICE A DAY 14 DAYS THREE WEEKS A CYCLE, 1 CYCLE OF TREATMENT WAS PERFORMED
     Route: 048
     Dates: start: 202201
  5. AVASTIN [Suspect]
     Active Substance: BEVACIZUMAB
     Indication: Invasive ductal breast carcinoma
     Dosage: 400 MG DAY 0 THREE WEEKS A CYCLE
     Route: 041
     Dates: start: 20220225, end: 20220601
  6. KADCYLA [Suspect]
     Active Substance: ADO-TRASTUZUMAB EMTANSINE
     Indication: Invasive ductal breast carcinoma
     Dosage: 160 MG THREE WEEKS A CYCLE, 30/JUN/2022 AND THEN ON 21/JUL/2022
     Route: 041
  7. PACLITAXEL [Concomitant]
     Active Substance: PACLITAXEL
     Indication: Invasive ductal breast carcinoma
     Dates: start: 20201023, end: 20210206
  8. TAMOXIFEN [Concomitant]
     Active Substance: TAMOXIFEN
  9. PYROTINIB [Concomitant]
     Active Substance: PYROTINIB
     Indication: Invasive ductal breast carcinoma
     Route: 048
     Dates: start: 20211111
  10. PYROTINIB [Concomitant]
     Active Substance: PYROTINIB
     Route: 048
     Dates: start: 202201
  11. EPIRUBICIN [Concomitant]
     Active Substance: EPIRUBICIN
     Indication: Invasive ductal breast carcinoma
     Dosage: 120 MG DAY1 THREE WEEKS A CYCLE
     Route: 041
     Dates: start: 20220225, end: 20220601
  12. CYCLOPHOSPHAMIDE [Concomitant]
     Active Substance: CYCLOPHOSPHAMIDE
     Indication: Invasive ductal breast carcinoma
     Dosage: 0.8 G DAY 1 THREE WEEKS A CYCLE
     Route: 040
     Dates: start: 20220225, end: 20220601
  13. INVESTIGATIONAL PRODUCT [Concomitant]
     Active Substance: INVESTIGATIONAL PRODUCT
     Indication: Invasive ductal breast carcinoma
     Dosage: 400 MG DAY 0 THREE WEEKS A CYCLE
     Route: 041
     Dates: start: 20220813
  14. MICELLAR PACLITAXEL [Concomitant]
     Indication: Invasive ductal breast carcinoma
     Dosage: 120 MG DAY 1,DAY 8 THREE WEEKS A CYCLE
     Dates: start: 20220813
  15. CARBOPLATIN [Concomitant]
     Active Substance: CARBOPLATIN
     Indication: Invasive ductal breast carcinoma
     Dates: start: 20201023, end: 20210206

REACTIONS (3)
  - Diarrhoea [Unknown]
  - Epilepsy [Recovering/Resolving]
  - Off label use [Unknown]

NARRATIVE: CASE EVENT DATE: 20220901
